FAERS Safety Report 16680492 (Version 3)
Quarter: 2019Q3

REPORT INFORMATION
  Report Type: Spontaneous
  Country: CN (occurrence: CN)
  Receive Date: 20190807
  Receipt Date: 20190910
  Transmission Date: 20191004
  Serious: Yes (Other)
  Sender: FDA-Public Use
  Company Number: CN-ASTRAZENECA-2019SF12200

PATIENT
  Sex: Female
  Weight: 35 kg

DRUGS (3)
  1. IRESSA [Suspect]
     Active Substance: GEFITINIB
     Indication: NON-SMALL CELL LUNG CANCER
     Route: 048
  2. TRADITIONAL CHINESE MEDICINE [Concomitant]
     Active Substance: HERBALS\HOMEOPATHICS
     Indication: IMMUNODEFICIENCY
     Dosage: DRINKED ONE DOSE OF MEDICINE FOR 2-3 DAYS
  3. TAGRISSO [Concomitant]
     Active Substance: OSIMERTINIB

REACTIONS (4)
  - Drug resistance [Unknown]
  - Malignant neoplasm progression [Unknown]
  - Pruritus [Recovered/Resolved]
  - Diarrhoea [Not Recovered/Not Resolved]
